FAERS Safety Report 21087774 (Version 1)
Quarter: 2022Q3

REPORT INFORMATION
  Report Type: Spontaneous
  Country: US (occurrence: None)
  Receive Date: 20220714
  Receipt Date: 20220714
  Transmission Date: 20221027
  Serious: Yes (Life-Threatening, Hospitalization)
  Sender: FDA-Public Use
  Company Number: None

PATIENT
  Age: 66 Year
  Sex: Male
  Weight: 88.7 kg

DRUGS (6)
  1. TRULICITY [Suspect]
     Active Substance: DULAGLUTIDE
     Indication: Type 2 diabetes mellitus
     Route: 058
     Dates: start: 20220711, end: 20220711
  2. INSULIN GLARGINE [Concomitant]
     Active Substance: INSULIN GLARGINE
  3. Metoprolol Succinate 35 mg [Concomitant]
  4. METFORMIN [Concomitant]
     Active Substance: METFORMIN HYDROCHLORIDE
  5. Atorvastatin 40 mg once daily [Concomitant]
  6. Empagliflozin 10 mg once daily [Concomitant]

REACTIONS (3)
  - Swollen tongue [None]
  - Obstructive airways disorder [None]
  - Rash [None]

NARRATIVE: CASE EVENT DATE: 20220711
